FAERS Safety Report 5144502-1 (Version None)
Quarter: 2006Q4

REPORT INFORMATION
  Report Type: 
  Country: None (occurrence: None)
  Receive Date: 20061030
  Receipt Date: 20061019
  Transmission Date: 20070319
  Serious: Yes (Hospitalization)
  Sender: FDA-Public Use
  Company Number: E2090-00114-SPO-US

PATIENT
  Age: 35 Year
  Sex: Female

DRUGS (6)
  1. ZONISAMIDE [Suspect]
     Indication: DRUG USE FOR UNKNOWN INDICATION
     Dosage: ORAL; OVERDOSE
     Route: 048
  2. ACETAMINOPHEN [Concomitant]
  3. BUTALBITAL [Concomitant]
  4. CARBAMAZEPINE [Concomitant]
  5. TIZANIDINE HCL [Concomitant]
  6. FENTANYL [Concomitant]

REACTIONS (10)
  - AMMONIA INCREASED [None]
  - ASPARTATE AMINOTRANSFERASE INCREASED [None]
  - CARBON DIOXIDE DECREASED [None]
  - COMA [None]
  - NO THERAPEUTIC RESPONSE [None]
  - OVERDOSE [None]
  - PCO2 DECREASED [None]
  - PO2 INCREASED [None]
  - PROTHROMBIN TIME PROLONGED [None]
  - RENAL TUBULAR ACIDOSIS [None]
